FAERS Safety Report 23279421 (Version 1)
Quarter: 2023Q4

REPORT INFORMATION
  Report Type: Report from Study
  Country: US (occurrence: US)
  Receive Date: 20231209
  Receipt Date: 20231209
  Transmission Date: 20240110
  Serious: Yes (Other)
  Sender: FDA-Public Use
  Company Number: US-JNJFOC-20231175565

PATIENT

DRUGS (4)
  1. PREZCOBIX [Interacting]
     Active Substance: COBICISTAT\DARUNAVIR ETHANOLATE
     Indication: HIV infection
     Dosage: 800 MG/150 MG
     Route: 048
  2. ISONIAZID [Suspect]
     Active Substance: ISONIAZID
     Indication: HIV infection
     Route: 065
  3. RIFAPENTINE [Suspect]
     Active Substance: RIFAPENTINE
     Indication: HIV infection
     Route: 065
  4. PYRIDOXINE [Suspect]
     Active Substance: PYRIDOXINE
     Indication: HIV infection
     Route: 048

REACTIONS (8)
  - Blood bilirubin increased [Recovered/Resolved]
  - Headache [Unknown]
  - Dizziness [Unknown]
  - Fatigue [Unknown]
  - Nausea [Unknown]
  - Diarrhoea [Unknown]
  - C-reactive protein increased [Unknown]
  - Drug interaction [Unknown]
